FAERS Safety Report 23851034 (Version 2)
Quarter: 2024Q2

REPORT INFORMATION
  Report Type: Spontaneous
  Country: US (occurrence: US)
  Receive Date: 20240514
  Receipt Date: 20240522
  Transmission Date: 20240716
  Serious: Yes (Hospitalization, Other)
  Sender: FDA-Public Use
  Company Number: US-UNITED THERAPEUTICS-UNT-2024-013782

PATIENT
  Sex: Male

DRUGS (4)
  1. REMODULIN [Suspect]
     Active Substance: TREPROSTINIL
     Indication: Pulmonary arterial hypertension
     Dosage: 0.075 ?G/KG, CONTINUING
     Route: 058
  2. REMODULIN [Suspect]
     Active Substance: TREPROSTINIL
     Dosage: UNK, CONTINUING
     Route: 058
     Dates: start: 202104
  3. KEFLEX [Suspect]
     Active Substance: CEPHALEXIN
     Indication: Infusion site infection
     Dosage: UNK
     Route: 065
  4. OPSUMIT [Concomitant]
     Active Substance: MACITENTAN
     Indication: Product used for unknown indication
     Dosage: UNK
     Route: 065

REACTIONS (9)
  - Cerebrovascular accident [Unknown]
  - Diplopia [Unknown]
  - Malaise [Unknown]
  - Infusion site infection [Not Recovered/Not Resolved]
  - Dyspnoea exertional [Unknown]
  - Peripheral swelling [Unknown]
  - Therapy non-responder [Unknown]
  - Infusion site scab [Unknown]
  - Infusion site vesicles [Unknown]
